FAERS Safety Report 12870139 (Version 1)
Quarter: 2016Q4

REPORT INFORMATION
  Report Type: Spontaneous
  Country: JP (occurrence: JP)
  Receive Date: 20161021
  Receipt Date: 20161021
  Transmission Date: 20170207
  Serious: Yes (Other)
  Sender: FDA-Public Use
  Company Number: JP-PFIZER INC-2016378118

PATIENT
  Age: 67 Year
  Sex: Male

DRUGS (4)
  1. CARDENALIN [Suspect]
     Active Substance: DOXAZOSIN MESYLATE
     Dosage: UNK
     Route: 048
  2. AMLODIPINE BESILATE [Suspect]
     Active Substance: AMLODIPINE BESYLATE
     Dosage: UNK
     Route: 048
  3. BAYCARON [Suspect]
     Active Substance: MEFRUSIDE
     Dosage: UNK
     Route: 048
  4. CHOTOSAN [Suspect]
     Active Substance: CALCIUM SULFATE\HERBALS
     Dosage: UNK

REACTIONS (3)
  - Blood uric acid increased [Unknown]
  - Blood sodium decreased [Unknown]
  - Blood potassium decreased [Unknown]

NARRATIVE: CASE EVENT DATE: 201607
